FAERS Safety Report 6290770-2 (Version None)
Quarter: 2009Q3

REPORT INFORMATION
  Report Type: 
  Country: None (occurrence: None)
  Receive Date: 20090730
  Receipt Date: 20090723
  Transmission Date: 20100115
  Serious: Yes (Hospitalization)
  Sender: FDA-Public Use
  Company Number: PHHO2005DE05649

PATIENT
  Sex: Female
  Weight: 65 kg

DRUGS (5)
  1. RAD 666 RAD+TAB+PTR [Suspect]
     Indication: RENAL TRANSPLANT
     Dosage: 1.5 MG, BID
     Route: 048
     Dates: start: 20050315
  2. RAD 666 RAD+TAB+PTR [Suspect]
     Dosage: 1 MG, BID
     Dates: start: 20050407
  3. MYFORTIC [Suspect]
     Indication: RENAL TRANSPLANT
     Dosage: 720 MG, BID
     Dates: start: 20020917, end: 20050408
  4. NEORAL [Suspect]
     Indication: RENAL TRANSPLANT
     Dosage: 400 MG DAILY DOSE
     Dates: start: 20010724, end: 20050314
  5. DOXYCYCLIN [Concomitant]
     Dates: start: 20050325, end: 20050403

REACTIONS (7)
  - DIARRHOEA [None]
  - GENITOURINARY TRACT INFECTION [None]
  - MALAISE [None]
  - PYREXIA [None]
  - RENAL FAILURE ACUTE [None]
  - SEPSIS [None]
  - VOMITING [None]
